FAERS Safety Report 9729426 (Version 1)
Quarter: 2013Q4

REPORT INFORMATION
  Report Type: Spontaneous
  Country: US (occurrence: US)
  Receive Date: 20131204
  Receipt Date: 20131204
  Transmission Date: 20140711
  Serious: No
  Sender: FDA-Public Use
  Company Number: US-GILEAD-2009-0021262

PATIENT
  Sex: Male
  Weight: 97.52 kg

DRUGS (11)
  1. LETAIRIS [Suspect]
     Indication: PULMONARY ARTERIAL HYPERTENSION
     Route: 048
     Dates: start: 20090317
  2. REVATIO [Concomitant]
  3. NORVASC [Concomitant]
  4. NADOLOL [Concomitant]
  5. FUROSEMIDE [Concomitant]
  6. AUGMENTIN [Concomitant]
  7. IMODIUM A-D [Concomitant]
  8. ACIPHEX [Concomitant]
  9. MAALOX PLUS [Concomitant]
  10. NIFEREX [Concomitant]
  11. MULTIVITAMIN [Concomitant]

REACTIONS (1)
  - Diarrhoea [Unknown]
